FAERS Safety Report 17805228 (Version 2)
Quarter: 2020Q2

REPORT INFORMATION
  Report Type: Spontaneous
  Country: ZA (occurrence: ZA)
  Receive Date: 20200520
  Receipt Date: 20200520
  Transmission Date: 20200714
  Serious: Yes (Other)
  Sender: FDA-Public Use
  Company Number: ZA-ORION CORPORATION ORION PHARMA-ENTC2020-0155

PATIENT
  Sex: Female

DRUGS (3)
  1. COMTAN [Suspect]
     Active Substance: ENTACAPONE
     Indication: PARKINSON^S DISEASE
     Route: 048
     Dates: start: 20200509
  2. CARBILEV [Concomitant]
     Active Substance: CARBIDOPA\LEVODOPA
     Route: 065
  3. STALEVO [Suspect]
     Active Substance: CARBIDOPA\ENTACAPONE\LEVODOPA
     Indication: PARKINSON^S DISEASE
     Dosage: STRENGTH: 100/25 MG
     Route: 048
     Dates: start: 20200510

REACTIONS (3)
  - Pain in extremity [Unknown]
  - Dystonia [Unknown]
  - Product availability issue [Unknown]

NARRATIVE: CASE EVENT DATE: 20200511
